FAERS Safety Report 20954404 (Version 2)
Quarter: 2022Q2

REPORT INFORMATION
  Report Type: Spontaneous
  Country: US (occurrence: None)
  Receive Date: 20220614
  Receipt Date: 20220615
  Transmission Date: 20220721
  Serious: No
  Sender: FDA-Public Use
  Company Number: US-MDD US Operations-MDD202108-001600

PATIENT
  Age: 46 Year
  Sex: Male

DRUGS (9)
  1. APOKYN [Suspect]
     Active Substance: APOMORPHINE HYDROCHLORIDE
     Indication: Product used for unknown indication
     Dosage: NOT PROVIDED
  2. CARBIDOPA\LEVODOPA [Concomitant]
     Active Substance: CARBIDOPA\LEVODOPA
     Dosage: 25-100 MG
     Route: 048
  3. CARBIDOPA\LEVODOPA [Concomitant]
     Active Substance: CARBIDOPA\LEVODOPA
     Dosage: 50-200 MG
  4. INBRIJA [Concomitant]
     Active Substance: LEVODOPA
     Indication: Parkinson^s disease
     Route: 048
     Dates: start: 20201215
  5. INBRIJA [Concomitant]
     Active Substance: LEVODOPA
     Indication: On and off phenomenon
  6. CLONAZEPAM [Concomitant]
     Active Substance: CLONAZEPAM
     Dosage: NOT PROVIDED
  7. MYRBETRIQ [Concomitant]
     Active Substance: MIRABEGRON
     Dosage: NOT PROVIDED
  8. SELEGILINE [Concomitant]
     Active Substance: SELEGILINE
     Dosage: NOT PROVIDED
  9. VENLAFAXINE HYDROCHLORIDE [Concomitant]
     Active Substance: VENLAFAXINE HYDROCHLORIDE
     Dosage: NOT PROVIDED

REACTIONS (2)
  - Cough [Unknown]
  - Hallucination [Not Recovered/Not Resolved]

NARRATIVE: CASE EVENT DATE: 20210426
